FAERS Safety Report 4374532-9 (Version None)
Quarter: 2004Q2

REPORT INFORMATION
  Report Type: 
  Country: None (occurrence: None)
  Receive Date: 20040602
  Receipt Date: 20040223
  Transmission Date: 20050107
  Serious: No
  Sender: FDA-Public Use
  Company Number: 200413282BWH

PATIENT
  Age: 64 Year
  Sex: Male

DRUGS (6)
  1. LEVITRA [Suspect]
     Indication: ERECTILE DYSFUNCTION
     Dosage: 5 MG, TOTAL DAILY, ORAL;10 MG, TOTAL DAILY, ORAL;15 MG, TOTAL DAILY, ORAL
     Route: 048
     Dates: start: 20040209
  2. LEVITRA [Suspect]
     Indication: ERECTILE DYSFUNCTION
     Dosage: 5 MG, TOTAL DAILY, ORAL;10 MG, TOTAL DAILY, ORAL;15 MG, TOTAL DAILY, ORAL
     Route: 048
     Dates: start: 20040212
  3. LEVITRA [Suspect]
     Indication: ERECTILE DYSFUNCTION
     Dosage: 5 MG, TOTAL DAILY, ORAL;10 MG, TOTAL DAILY, ORAL;15 MG, TOTAL DAILY, ORAL
     Route: 048
     Dates: start: 20040216
  4. CELEBREX [Concomitant]
  5. SYNTHROID [Concomitant]
  6. VIAGRA [Concomitant]

REACTIONS (1)
  - ERECTILE DYSFUNCTION [None]
